FAERS Safety Report 7885161-4 (Version None)
Quarter: 2011Q4

REPORT INFORMATION
  Report Type: 
  Country: None (occurrence: None)
  Receive Date: 20111102
  Receipt Date: 20111025
  Transmission Date: 20120403
  Serious: Yes (Hospitalization)
  Sender: FDA-Public Use
  Company Number: US-ELI_LILLY_AND_COMPANY-US201110007755

PATIENT
  Sex: Female

DRUGS (12)
  1. FISH OIL [Concomitant]
     Dosage: UNK
  2. VITAMIN D [Concomitant]
     Dosage: 50000 U, WEEKLY (1/W)
  3. HUMALOG [Suspect]
     Indication: DIABETES MELLITUS
     Dosage: 10 U, PRN
     Dates: start: 20100301
  4. BIOTIN [Concomitant]
     Dosage: UNK
  5. HUMALOG [Suspect]
     Dosage: 10 U, PRN
     Dates: start: 20100301
  6. XANAX [Concomitant]
     Dosage: UNK
  7. SINGULAIR [Concomitant]
     Dosage: UNK
  8. PREDNISONE [Concomitant]
     Indication: PNEUMONIA
  9. MULTI-VITAMIN [Concomitant]
     Dosage: UNK
  10. VITAMIN B-12 [Concomitant]
     Dosage: UNK
  11. ASPIRIN [Concomitant]
     Dosage: 81 MG, UNK
  12. HUMULIN R [Suspect]
     Indication: DIABETES MELLITUS
     Dosage: UNK, PRN
     Dates: start: 20040701, end: 20100301

REACTIONS (14)
  - STRESS [None]
  - KNEE ARTHROPLASTY [None]
  - HEAD INJURY [None]
  - BLOOD GLUCOSE INCREASED [None]
  - FALL [None]
  - MUSCLE SPASMS [None]
  - EYE PAIN [None]
  - BRONCHITIS [None]
  - PARAESTHESIA [None]
  - ANEURYSM [None]
  - UNDERDOSE [None]
  - ROAD TRAFFIC ACCIDENT [None]
  - VISUAL IMPAIRMENT [None]
  - PRODUCT QUALITY ISSUE [None]
